FAERS Safety Report 8619734-8 (Version None)
Quarter: 2012Q3

REPORT INFORMATION
  Report Type: 
  Country: None (occurrence: None)
  Receive Date: 20120824
  Receipt Date: 20120809
  Transmission Date: 20120928
  Serious: Yes (Hospitalization)
  Sender: FDA-Public Use
  Company Number: US-009507513-1208USA001238

PATIENT

DRUGS (6)
  1. CENTRUM (MINERALS (UNSPECIFIED) (+) VITAMINS (UNSPECIFIED)) [Concomitant]
  2. TELAPREVIR [Suspect]
     Dosage: 750 MG, Q8H
     Route: 048
  3. NORVASC [Suspect]
  4. XANTHOPHYLL [Concomitant]
  5. PEG-INTRON [Suspect]
     Indication: HEPATITIS C
     Dosage: UNK, QW
     Dates: start: 20120216
  6. RIBAVIRIN [Suspect]
     Dosage: 600 MG, BID
     Route: 048

REACTIONS (2)
  - GASTROINTESTINAL HAEMORRHAGE [None]
  - INTESTINAL POLYP [None]
